FAERS Safety Report 15738730 (Version 2)
Quarter: 2025Q3

REPORT INFORMATION
  Report Type: Spontaneous
  Country: EU (occurrence: EU)
  Receive Date: 20181219
  Receipt Date: 20250812
  Transmission Date: 20251020
  Serious: Yes (Hospitalization, Other)
  Sender: AUROBINDO
  Company Number: EU-AUROBINDO-AUR-APL-2018-060371

PATIENT
  Age: 73 Year
  Sex: Female

DRUGS (9)
  1. METFORMIN [Suspect]
     Active Substance: METFORMIN HYDROCHLORIDE
     Indication: Type 2 diabetes mellitus
     Dosage: 850 MILLIGRAM, 3 TIMES A DAY
     Route: 065
  2. ACENOCOUMAROL [Concomitant]
     Active Substance: ACENOCOUMAROL
     Indication: Product used for unknown indication
     Route: 065
  3. BISOPROLOL [Concomitant]
     Active Substance: BISOPROLOL
     Indication: Product used for unknown indication
     Route: 065
  4. DIGOXIN [Concomitant]
     Active Substance: DIGOXIN
     Indication: Product used for unknown indication
     Route: 065
  5. INSULIN GLARGINE [Concomitant]
     Active Substance: INSULIN GLARGINE
     Indication: Product used for unknown indication
     Route: 065
  6. LORMETAZEPAM [Concomitant]
     Active Substance: LORMETAZEPAM
     Indication: Product used for unknown indication
     Route: 065
  7. TIOTROPIUM BROMIDE [Concomitant]
     Active Substance: TIOTROPIUM BROMIDE
     Indication: Product used for unknown indication
     Route: 065
  8. TORSEMIDE [Concomitant]
     Active Substance: TORSEMIDE
     Indication: Product used for unknown indication
     Route: 065
  9. TERBUTALINE [Concomitant]
     Active Substance: TERBUTALINE
     Indication: Product used for unknown indication
     Route: 065

REACTIONS (24)
  - Alanine aminotransferase increased [Recovered/Resolved]
  - Polyuria [Recovered/Resolved]
  - Lactic acidosis [Unknown]
  - Neutrophilia [Unknown]
  - Aspartate aminotransferase increased [Recovered/Resolved]
  - Asthenia [Recovered/Resolved]
  - Liver injury [Recovered/Resolved]
  - Polydipsia [Unknown]
  - Activated partial thromboplastin time prolonged [Recovered/Resolved]
  - Renal failure [Recovered/Resolved]
  - Blood bilirubin increased [Recovered/Resolved]
  - Condition aggravated [Recovered/Resolved]
  - Dyspnoea [Unknown]
  - Hepatotoxicity [Recovered/Resolved]
  - Blood lactic acid increased [Unknown]
  - Dehydration [Unknown]
  - Lactate dehydrogenase urine increased [Unknown]
  - Leukocytosis [Unknown]
  - Hepatic failure [Recovered/Resolved]
  - Pleural effusion [Unknown]
  - Anaemia [Unknown]
  - Decreased appetite [Recovered/Resolved]
  - Vomiting [Recovered/Resolved]
  - Abdominal pain upper [Recovered/Resolved]
